FAERS Safety Report 13695657 (Version 7)
Quarter: 2019Q3

REPORT INFORMATION
  Report Type: Spontaneous
  Country: US (occurrence: US)
  Receive Date: 20170627
  Receipt Date: 20190905
  Transmission Date: 20191004
  Serious: Yes (Hospitalization)
  Sender: FDA-Public Use
  Company Number: US-VIFOR (INTERNATIONAL) INC.-VIT-2016-07877

PATIENT
  Age: 68 Year
  Sex: Female

DRUGS (9)
  1. VELTASSA [Suspect]
     Active Substance: PATIROMER
     Indication: HYPERKALAEMIA
     Route: 048
     Dates: start: 20160707
  2. COUMADIN [Concomitant]
     Active Substance: WARFARIN SODIUM
  3. ELIQUIS [Concomitant]
     Active Substance: APIXABAN
  4. VITAMIN C [Concomitant]
     Active Substance: ASCORBIC ACID
  5. VITAMIN D [Concomitant]
     Active Substance: VITAMIN D NOS
  6. FOLIC ACID. [Concomitant]
     Active Substance: FOLIC ACID
  7. METOPROLOL. [Concomitant]
     Active Substance: METOPROLOL
  8. VITAMIN D3 [Concomitant]
     Active Substance: CHOLECALCIFEROL
  9. VELTASSA [Suspect]
     Active Substance: PATIROMER
     Route: 048
     Dates: start: 20160318

REACTIONS (16)
  - Dehydration [Recovered/Resolved]
  - Gait disturbance [Unknown]
  - Sickle cell disease [Unknown]
  - Drug level changed [Unknown]
  - Confusional state [Unknown]
  - Balance disorder [Unknown]
  - Nausea [Recovered/Resolved]
  - Product taste abnormal [Unknown]
  - Visual impairment [Unknown]
  - Ill-defined disorder [Recovered/Resolved]
  - Diarrhoea [Recovered/Resolved]
  - Thrombosis [Unknown]
  - Blood potassium increased [Unknown]
  - Product dose omission [Unknown]
  - Posture abnormal [Unknown]
  - Fall [Not Recovered/Not Resolved]

NARRATIVE: CASE EVENT DATE: 2016
